FAERS Safety Report 18213591 (Version 6)
Quarter: 2021Q2

REPORT INFORMATION
  Report Type: Spontaneous
  Country: US (occurrence: US)
  Receive Date: 20200831
  Receipt Date: 20210603
  Transmission Date: 20210717
  Serious: Yes (Other)
  Sender: FDA-Public Use
  Company Number: US-PFIZER INC-2020335940

PATIENT
  Age: 77 Year
  Sex: Female

DRUGS (4)
  1. IBRANCE [Suspect]
     Active Substance: PALBOCICLIB
     Indication: BREAST CANCER FEMALE
     Dosage: 100 MG, CYCLIC (1X/DAY FOR 21 DAYS EVERY 28 DAYS)
     Dates: start: 20190503
  2. GABAPENTIN. [Concomitant]
     Active Substance: GABAPENTIN
  3. AMITRIPTYLINE [Concomitant]
     Active Substance: AMITRIPTYLINE
  4. IBRANCE [Suspect]
     Active Substance: PALBOCICLIB
     Dosage: 100 MG, CYCLIC (1X/DAY, 14 DAYS ON, 14 DAYS OFF)
     Dates: start: 20200417

REACTIONS (8)
  - Hypoaesthesia [Unknown]
  - Insomnia [Not Recovered/Not Resolved]
  - Stomatitis [Recovered/Resolved]
  - Neuropathy peripheral [Unknown]
  - Poor quality sleep [Unknown]
  - White blood cell count decreased [Unknown]
  - Fatigue [Recovered/Resolved]
  - Oral pain [Recovered/Resolved]

NARRATIVE: CASE EVENT DATE: 2020
